FAERS Safety Report 7668017 (Version 5)
Quarter: 2012Q4

REPORT INFORMATION
  Report Type: 
  Country: US (occurrence: US)
  Receive Date: 20101115
  Receipt Date: 20120926
  Transmission Date: 20130627
  Serious: Yes (Hospitalization)
  Sender: FDA-Public Use
  Company Number: US-BAYER-201032236NA

PATIENT
  Age: 27 Year
  Sex: Female
  Weight: 75 kg

DRUGS (16)
  1. YAZ [Suspect]
     Indication: CONTRACEPTION
     Dosage: UNK
     Dates: start: 200902, end: 200904
  2. SERTRALINE [Concomitant]
     Indication: DEPRESSION
     Dosage: UNK
     Dates: start: 2008, end: 2009
  3. AZITHROMYCIN [Concomitant]
  4. ZOLOFT [Concomitant]
     Dosage: UNK
  5. OPIOIDS [Concomitant]
     Indication: PAIN
     Dosage: UNK
     Dates: start: 20090427
  6. NSAID^S [Concomitant]
     Indication: PAIN
     Dosage: UNK
     Dates: start: 20090427
  7. LEVAQUIN [Concomitant]
     Indication: BRONCHITIS
     Dosage: UNK
     Dates: start: 20090429
  8. DILAUDID [Concomitant]
  9. ZOFRAN [Concomitant]
  10. OXYCONTIN [Concomitant]
     Dosage: 10 mg, 1-2 tablets BID
     Route: 048
  11. VICODIN [Concomitant]
  12. METHYLPREDNISOLONE [Concomitant]
     Dosage: 4 mg, UNK
     Dates: start: 20090401
  13. CHERATUSSIN AC [Concomitant]
     Dosage: UNK
     Dates: start: 20090401
  14. MIRALAX [Concomitant]
     Indication: CONSTIPATION
     Dosage: 1 to 2 scoops per day
  15. LORTAB [Concomitant]
     Dosage: 7.5mg/500mg 1-2 tablets Q4HR as needed
  16. IRON [FERROUS SULFATE] [Concomitant]
     Dosage: 325 mg, BID

REACTIONS (4)
  - Deep vein thrombosis [Unknown]
  - Pelvic venous thrombosis [None]
  - Pain [Unknown]
  - Injury [Unknown]
